FAERS Safety Report 14450856 (Version 1)
Quarter: 2018Q1

REPORT INFORMATION
  Report Type: Spontaneous
  Country: US (occurrence: US)
  Receive Date: 20180126
  Receipt Date: 20180126
  Transmission Date: 20180509
  Serious: No
  Sender: FDA-Public Use
  Company Number: None

PATIENT
  Age: 57 Year
  Sex: Female

DRUGS (1)
  1. HARVONI [Suspect]
     Active Substance: LEDIPASVIR\SOFOSBUVIR
     Route: 048

REACTIONS (5)
  - Somnolence [None]
  - Pruritus [None]
  - Unevaluable event [None]
  - Hunger [None]
  - Drug dose omission [None]

NARRATIVE: CASE EVENT DATE: 20180126
